FAERS Safety Report 10384545 (Version 1)
Quarter: 2014Q3

REPORT INFORMATION
  Report Type: Spontaneous
  Country: JP (occurrence: None)
  Receive Date: 20140812
  Receipt Date: 20140812
  Transmission Date: 20150326
  Serious: Yes (Death, Other)
  Sender: FDA-Public Use
  Company Number: 153478

PATIENT
  Age: 16 Year
  Sex: Female

DRUGS (1)
  1. ADRIAMYCIN [Suspect]
     Active Substance: DOXORUBICIN HYDROCHLORIDE
     Indication: ACUTE LYMPHOCYTIC LEUKAEMIA
     Dosage: ON DAY 1

REACTIONS (5)
  - Renal failure acute [None]
  - Leukaemia recurrent [None]
  - Ventricular fibrillation [None]
  - Interstitial lung disease [None]
  - Haematotoxicity [None]
